FAERS Safety Report 4512308-X (Version None)
Quarter: 2004Q4

REPORT INFORMATION
  Report Type: 
  Country: None (occurrence: None)
  Receive Date: 20041129
  Receipt Date: 20041102
  Transmission Date: 20050328
  Serious: Yes (Other)
  Sender: FDA-Public Use
  Company Number: 200403249

PATIENT
  Age: 68 Year
  Sex: Male

DRUGS (14)
  1. TAGAMET [Suspect]
     Indication: GASTRITIS
     Dosage: 200MG UNKNOWN
     Route: 065
     Dates: start: 20030122, end: 20040906
  2. BAKTAR [Concomitant]
     Route: 065
     Dates: start: 20040804, end: 20040906
  3. PANALDINE [Concomitant]
     Route: 065
     Dates: start: 20011001, end: 20040906
  4. APRINDINE HYDROCHLORIDE [Concomitant]
     Route: 065
     Dates: start: 20020501, end: 20040906
  5. CARDENALIN [Concomitant]
     Route: 065
     Dates: start: 20040326, end: 20040906
  6. NORVASC [Concomitant]
     Route: 065
     Dates: start: 20030122
  7. ACECOL [Concomitant]
     Route: 065
     Dates: start: 20011001
  8. LANIRAPID [Concomitant]
     Route: 065
     Dates: start: 20020101, end: 20040906
  9. CALTAN [Concomitant]
     Route: 065
     Dates: start: 20040322, end: 20040906
  10. KAYEXALATE [Concomitant]
     Route: 065
     Dates: start: 20040809, end: 20040906
  11. LENDORMIN [Concomitant]
     Route: 065
     Dates: start: 20040322
  12. PURSENNID [Concomitant]
     Route: 065
     Dates: start: 20040322
  13. ADALAT [Concomitant]
     Route: 065
     Dates: start: 20040322
  14. WARKMIN [Concomitant]
     Dates: start: 20040809, end: 20040906

REACTIONS (3)
  - APLASTIC ANAEMIA [None]
  - BLOOD LACTATE DEHYDROGENASE INCREASED [None]
  - C-REACTIVE PROTEIN INCREASED [None]
